FAERS Safety Report 7952270-0 (Version None)
Quarter: 2011Q4

REPORT INFORMATION
  Report Type: 
  Country: None (occurrence: None)
  Receive Date: 20111201
  Receipt Date: 20111123
  Transmission Date: 20120403
  Serious: Yes (Hospitalization, Disabling)
  Sender: FDA-Public Use
  Company Number: MX-SANOFI-AVENTIS-2011SA077273

PATIENT
  Age: 67 Year
  Sex: Male
  Weight: 93 kg

DRUGS (6)
  1. LANTUS [Suspect]
     Indication: TYPE 2 DIABETES MELLITUS
     Route: 058
     Dates: start: 20070101
  2. CARVEDILOL [Concomitant]
     Route: 048
     Dates: start: 20070101
  3. TRIACOR [Suspect]
     Dosage: TABLET STRENGTH: 5MG+5MG
     Route: 048
     Dates: start: 20070101
  4. PIOGLITAZONE [Concomitant]
     Indication: TYPE 2 DIABETES MELLITUS
     Route: 048
     Dates: start: 20070101, end: 20111001
  5. JANUMET [Concomitant]
     Indication: TYPE 2 DIABETES MELLITUS
     Route: 048
     Dates: start: 20070101, end: 20111001
  6. VOLTAREN [Concomitant]
     Indication: PAIN
     Route: 048
     Dates: start: 20111001

REACTIONS (3)
  - FIBULA FRACTURE [None]
  - FALL [None]
  - TIBIA FRACTURE [None]
